FAERS Safety Report 22832364 (Version 2)
Quarter: 2025Q2

REPORT INFORMATION
  Report Type: Report from Study
  Country: CA (occurrence: CA)
  Receive Date: 20230817
  Receipt Date: 20250427
  Transmission Date: 20250716
  Serious: Yes (Other)
  Sender: AUROBINDO
  Company Number: CA-AUROBINDO-AUR-APL-2023-052777

PATIENT
  Sex: Male

DRUGS (5)
  1. ATORVASTATIN [Suspect]
     Active Substance: ATORVASTATIN
     Indication: Type IIa hyperlipidaemia
     Dosage: 80 MILLIGRAM, ONCE A DAY
     Route: 065
  2. EZETIMIBE [Suspect]
     Active Substance: EZETIMIBE
     Indication: Type IIa hyperlipidaemia
     Dosage: 10 MILLIGRAM, ONCE A DAY
     Route: 065
  3. ROSUVASTATIN [Suspect]
     Active Substance: ROSUVASTATIN
     Indication: Type IIa hyperlipidaemia
     Dosage: 40 MILLIGRAM, ONCE A DAY
     Route: 065
  4. EVOLOCUMAB [Suspect]
     Active Substance: EVOLOCUMAB
     Indication: Type IIa hyperlipidaemia
     Route: 058
  5. LOMITAPIDE [Concomitant]
     Active Substance: LOMITAPIDE
     Indication: Type IIa hyperlipidaemia
     Route: 065

REACTIONS (1)
  - Therapeutic response decreased [Unknown]
